FAERS Safety Report 9519581 (Version 2)
Quarter: 2013Q4

REPORT INFORMATION
  Report Type: Report from Study
  Country: AU (occurrence: AU)
  Receive Date: 20130912
  Receipt Date: 20131016
  Transmission Date: 20140711
  Serious: Yes (Death)
  Sender: FDA-Public Use
  Company Number: AU-ROCHE-1274672

PATIENT
  Sex: Male
  Weight: 107 kg

DRUGS (1)
  1. AVASTIN [Suspect]
     Indication: GLIOMA
     Route: 042
     Dates: start: 20130424, end: 20130625

REACTIONS (1)
  - Sudden death [Fatal]
